FAERS Safety Report 5244056-5 (Version None)
Quarter: 2007Q1

REPORT INFORMATION
  Report Type: 
  Country: None (occurrence: None)
  Receive Date: 20070212
  Receipt Date: 20070201
  Transmission Date: 20070707
  Serious: Yes (Hospitalization, Disabling)
  Sender: FDA-Public Use
  Company Number: 2007-152913-NL

PATIENT
  Age: 66 Year
  Sex: Male

DRUGS (6)
  1. TICE BCG [Suspect]
     Indication: BLADDER CANCER
     Dosage: INTRAVESICAL
     Route: 043
     Dates: start: 20060227, end: 20060404
  2. METOPROLOL SUCCINATE [Concomitant]
  3. ACETAMINOPHEN [Concomitant]
  4. DIAZEPAM [Concomitant]
  5. ASPIRIN [Concomitant]
  6. ISOSORBIDE MONONTRATE [Concomitant]

REACTIONS (1)
  - REITER'S SYNDROME [None]
